FAERS Safety Report 8339244-5 (Version None)
Quarter: 2012Q2

REPORT INFORMATION
  Report Type: 
  Country: None (occurrence: None)
  Receive Date: 20120502
  Receipt Date: 20120417
  Transmission Date: 20120825
  Serious: Yes (Death, Life-Threatening, Hospitalization)
  Sender: FDA-Public Use
  Company Number: FK201201184

PATIENT
  Age: 32 Year
  Sex: Male

DRUGS (7)
  1. PREDNISONE [Suspect]
     Indication: LYMPHOMA
  2. CYCLOPHOSPHAMIDE [Suspect]
     Indication: LYMPHOMA
  3. DOXORUBICIN HYDROCHLORIDE [Suspect]
     Indication: LYMPHOMA
  4. CEFTAZIDIME [Concomitant]
  5. AMIKACIN [Concomitant]
  6. BLEOMYCIN SULFATE [Suspect]
     Indication: LYMPHOMA
  7. ETOPOSIDE [Suspect]
     Indication: LYMPHOMA

REACTIONS (6)
  - FEBRILE NEUTROPENIA [None]
  - ASPERGILLOSIS [None]
  - MULTI-ORGAN FAILURE [None]
  - IMPAIRED HEALING [None]
  - PYREXIA [None]
  - BACTERIAL SEPSIS [None]
